FAERS Safety Report 23153917 (Version 1)
Quarter: 2023Q4

REPORT INFORMATION
  Report Type: Spontaneous
  Country: FR (occurrence: FR)
  Receive Date: 20231107
  Receipt Date: 20231107
  Transmission Date: 20240110
  Serious: Yes (Other)
  Sender: FDA-Public Use
  Company Number: None

PATIENT
  Age: 27 Year
  Sex: Female
  Weight: 66.7 kg

DRUGS (2)
  1. NIFEDIPINE [Suspect]
     Active Substance: NIFEDIPINE
     Indication: Premature rupture of membranes
     Dosage: 3 DOSAGE FORM, QD
     Route: 048
     Dates: start: 20211230, end: 20220101
  2. AMOXICILLIN [Suspect]
     Active Substance: AMOXICILLIN
     Indication: Premature rupture of membranes
     Dosage: 3 DOSAGE FORM, QD
     Route: 048
     Dates: start: 20211230, end: 20220101

REACTIONS (1)
  - Skin reaction [Recovered/Resolved]

NARRATIVE: CASE EVENT DATE: 20211231
